FAERS Safety Report 22259649 (Version 1)
Quarter: 2023Q2

REPORT INFORMATION
  Report Type: Report from Study
  Country: US (occurrence: US)
  Receive Date: 20230427
  Receipt Date: 20230427
  Transmission Date: 20230722
  Serious: Yes (Hospitalization, Other)
  Sender: FDA-Public Use
  Company Number: US-TAKEDA-2023TUS039683

PATIENT
  Age: 50 Year
  Sex: Male
  Weight: 145 kg

DRUGS (13)
  1. MARIBAVIR [Suspect]
     Active Substance: MARIBAVIR
     Indication: Cytomegalovirus infection
     Dosage: UNK
     Route: 065
  2. GANCICLOVIR [Concomitant]
     Active Substance: GANCICLOVIR
     Dosage: 390 MILLIGRAM, Q12H
     Route: 042
     Dates: end: 20230422
  3. METFORMIN HYDROCHLORIDE [Concomitant]
     Active Substance: METFORMIN HYDROCHLORIDE
     Dosage: 500 MILLIGRAM, BID
     Route: 048
  4. CARVEDILOL [Concomitant]
     Active Substance: CARVEDILOL
     Dosage: 25 MILLIGRAM, BID
     Route: 048
  5. OYSTER SHELL CALCIUM WITH VITAMIN D [Concomitant]
     Active Substance: CALCIUM\CHOLECALCIFEROL
     Dosage: UNK, BID
     Route: 048
  6. PROGRAF [Concomitant]
     Active Substance: TACROLIMUS
     Dosage: 2 MILLIGRAM, QD
     Route: 048
  7. PROGRAF [Concomitant]
     Active Substance: TACROLIMUS
     Dosage: 1 MILLIGRAM, QD
     Route: 048
  8. PREDNISONE [Concomitant]
     Active Substance: PREDNISONE
     Dosage: 5 MILLIGRAM, QD
     Route: 048
  9. GABAPENTIN [Concomitant]
     Active Substance: GABAPENTIN
     Dosage: 300 MILLIGRAM, TID
     Route: 048
  10. BUMEX [Concomitant]
     Active Substance: BUMETANIDE
     Dosage: 1 MILLIGRAM, QD
     Route: 048
  11. KEPPRA [Concomitant]
     Active Substance: LEVETIRACETAM
     Dosage: 250 MILLIGRAM, BID
     Route: 048
  12. ASPIRIN [Concomitant]
     Active Substance: ASPIRIN
     Dosage: 81 MILLIGRAM, BID
     Route: 048
  13. PRAVASTATIN SODIUM [Concomitant]
     Active Substance: PRAVASTATIN SODIUM
     Dosage: 40 MILLIGRAM, QD
     Route: 048

REACTIONS (3)
  - Septic shock [Unknown]
  - Seizure [Unknown]
  - Heart transplant rejection [Unknown]

NARRATIVE: CASE EVENT DATE: 20201001
